FAERS Safety Report 18418985 (Version 1)
Quarter: 2020Q4

REPORT INFORMATION
  Report Type: Spontaneous
  Country: BR (occurrence: BR)
  Receive Date: 20201023
  Receipt Date: 20201023
  Transmission Date: 20210114
  Serious: Yes (Hospitalization)
  Sender: FDA-Public Use
  Company Number: BR-LUPIN PHARMACEUTICALS INC.-2020-07614

PATIENT
  Age: 84 Year
  Sex: Male

DRUGS (8)
  1. TRAMADOL. [Suspect]
     Active Substance: TRAMADOL
     Indication: LUMBAR VERTEBRAL FRACTURE
     Dosage: 50 MILLIGRAM, TID
     Route: 065
  2. CODEINE [Suspect]
     Active Substance: CODEINE
     Indication: BACK PAIN
     Dosage: 30 MILLIGRAM, TID
     Route: 065
  3. KETOPROFEN. [Suspect]
     Active Substance: KETOPROFEN
     Indication: BACK PAIN
     Dosage: 100 MILLIGRAM, BID
     Route: 065
  4. KETOPROFEN. [Suspect]
     Active Substance: KETOPROFEN
     Indication: LUMBAR VERTEBRAL FRACTURE
  5. DIPYRONE [Suspect]
     Active Substance: DIPYRONE
     Indication: BACK PAIN
     Dosage: 500 MILLIGRAM, QID
     Route: 065
  6. DIPYRONE [Suspect]
     Active Substance: DIPYRONE
     Indication: LUMBAR VERTEBRAL FRACTURE
  7. TRAMADOL. [Suspect]
     Active Substance: TRAMADOL
     Indication: BACK PAIN
  8. CODEINE [Suspect]
     Active Substance: CODEINE
     Indication: LUMBAR VERTEBRAL FRACTURE

REACTIONS (1)
  - Therapy non-responder [Unknown]
